FAERS Safety Report 20649604 (Version 1)
Quarter: 2022Q1

REPORT INFORMATION
  Report Type: Spontaneous
  Country: US (occurrence: US)
  Receive Date: 20220329
  Receipt Date: 20220329
  Transmission Date: 20220424
  Serious: No
  Sender: FDA-Public Use
  Company Number: US-PFIZER INC-202101064947

PATIENT
  Age: 66 Year
  Sex: Female
  Weight: 88.45 kg

DRUGS (2)
  1. XELJANZ XR [Suspect]
     Active Substance: TOFACITINIB CITRATE
     Indication: Rheumatoid arthritis
     Dosage: 11 MG, DAILY (TAKE ONCE DAILY BY MONTH )
     Route: 048
  2. HYDROXYCHLOROQUINE [Concomitant]
     Active Substance: HYDROXYCHLOROQUINE
     Indication: Rheumatoid arthritis
     Dosage: 200 MG, DAILY (TAKE ONCE DAILY BY MOUTH)
     Route: 048

REACTIONS (8)
  - COVID-19 [Unknown]
  - Feeling abnormal [Unknown]
  - Headache [Recovering/Resolving]
  - Chills [Recovered/Resolved]
  - Somnolence [Recovered/Resolved]
  - Pyrexia [Recovering/Resolving]
  - Sinusitis [Unknown]
  - Cough [Not Recovered/Not Resolved]

NARRATIVE: CASE EVENT DATE: 20210813
